FAERS Safety Report 22907116 (Version 7)
Quarter: 2024Q3

REPORT INFORMATION
  Report Type: Spontaneous
  Country: JP (occurrence: JP)
  Receive Date: 20230905
  Receipt Date: 20240705
  Transmission Date: 20241017
  Serious: Yes (Death, Hospitalization, Other)
  Sender: BRISTOL MYERS SQUIBB
  Company Number: JP-ONO-2023JP022130

PATIENT
  Age: 85 Year
  Sex: Male

DRUGS (3)
  1. OPDIVO [Suspect]
     Active Substance: NIVOLUMAB
     Indication: Non-small cell lung cancer
     Route: 041
     Dates: start: 202307
  2. CARBOPLATIN [Concomitant]
     Active Substance: CARBOPLATIN
     Indication: Non-small cell lung cancer
     Dates: start: 202307
  3. PACLITAXEL [Concomitant]
     Active Substance: PACLITAXEL
     Indication: Non-small cell lung cancer
     Dates: start: 202307

REACTIONS (9)
  - Organising pneumonia [Recovering/Resolving]
  - Platelet count decreased [Not Recovered/Not Resolved]
  - Prescribed underdose [Unknown]
  - Myocardial ischaemia [Unknown]
  - Cytokine release syndrome [Fatal]
  - Immune-mediated enterocolitis [Fatal]
  - Immune-mediated hypothyroidism [Recovering/Resolving]
  - Pyrexia [Unknown]
  - Malaise [Unknown]

NARRATIVE: CASE EVENT DATE: 20230701
